FAERS Safety Report 14837326 (Version 1)
Quarter: 2018Q2

REPORT INFORMATION
  Report Type: Spontaneous
  Country: US (occurrence: US)
  Receive Date: 20180420
  Receipt Date: 20180420
  Transmission Date: 20180711
  Serious: No
  Sender: FDA-Public Use
  Company Number: None

PATIENT
  Age: 65 Year
  Sex: Female
  Weight: 72.57 kg

DRUGS (7)
  1. LISINOPRIL. [Concomitant]
     Active Substance: LISINOPRIL
  2. LYRICA [Suspect]
     Active Substance: PREGABALIN
     Indication: DIABETIC NEUROPATHY
     Route: 048
     Dates: start: 20180405
  3. IBUPROFEN. [Concomitant]
     Active Substance: IBUPROFEN
  4. MELATONIN [Concomitant]
     Active Substance: MELATONIN
  5. ATORVASTATIN CAL [Concomitant]
  6. ST. JOHN^S WORT [Concomitant]
     Active Substance: ST. JOHN^S WORT
  7. GABAPENTIN. [Concomitant]
     Active Substance: GABAPENTIN

REACTIONS (7)
  - Pain in extremity [None]
  - Musculoskeletal stiffness [None]
  - Dizziness [None]
  - Disorientation [None]
  - Muscular weakness [None]
  - Pain [None]
  - Discomfort [None]

NARRATIVE: CASE EVENT DATE: 20180405
